FAERS Safety Report 4997287-3 (Version None)
Quarter: 2006Q2

REPORT INFORMATION
  Report Type: 
  Country: None (occurrence: None)
  Receive Date: 20060509
  Receipt Date: 20060301
  Transmission Date: 20061013
  Serious: Yes (Hospitalization)
  Sender: FDA-Public Use
  Company Number: AU-BOEHRINGER INGELHEIM PHARMACEUTICALS, INC.-2006-BP-02377AU

PATIENT
  Age: 83 Year
  Sex: Female

DRUGS (2)
  1. MOBIC [Suspect]
  2. PROTON PUMP INHIBITOR [Concomitant]

REACTIONS (1)
  - OBSTRUCTION GASTRIC [None]
